FAERS Safety Report 17108207 (Version 1)
Quarter: 2019Q4

REPORT INFORMATION
  Report Type: Spontaneous
  Country: US (occurrence: US)
  Receive Date: 20191204
  Receipt Date: 20191204
  Transmission Date: 20200122
  Serious: No
  Sender: FDA-Public Use
  Company Number: NVSC2019US053031

PATIENT
  Age: 74 Year
  Sex: Male

DRUGS (1)
  1. ENTRESTO [Suspect]
     Active Substance: SACUBITRIL\VALSARTAN
     Indication: HYPOTENSION
     Dosage: 24 MG, BID
     Route: 048
     Dates: start: 20171205, end: 20171220

REACTIONS (2)
  - Hypotension [Unknown]
  - Product use in unapproved indication [Unknown]
